FAERS Safety Report 11334739 (Version 1)
Quarter: 2015Q3

REPORT INFORMATION
  Report Type: Spontaneous
  Country: US (occurrence: None)
  Receive Date: 20150731
  Receipt Date: 20150731
  Transmission Date: 20151125
  Serious: No
  Sender: FDA-Public Use
  Company Number: None

PATIENT
  Age: 68 Year
  Sex: Female

DRUGS (8)
  1. LIDOCAINE. [Concomitant]
     Active Substance: LIDOCAINE
  2. FAMOTIDINE. [Concomitant]
     Active Substance: FAMOTIDINE
  3. GABAPENTIN. [Concomitant]
     Active Substance: GABAPENTIN
  4. AMPCILLIN/SULBACTAM [Concomitant]
  5. HYDROMORPHONE [Suspect]
     Active Substance: HYDROMORPHONE
     Indication: PAIN
     Dosage: PCA
     Dates: start: 20141117, end: 20141117
  6. ACETAMINOPHEN. [Concomitant]
     Active Substance: ACETAMINOPHEN
  7. HEPARIN [Concomitant]
     Active Substance: HEPARIN SODIUM
  8. INSULIN [Concomitant]
     Active Substance: INSULIN NOS

REACTIONS (1)
  - Sedation [None]

NARRATIVE: CASE EVENT DATE: 20141117
